FAERS Safety Report 19735309 (Version 1)
Quarter: 2021Q3

REPORT INFORMATION
  Report Type: Other
  Country: US (occurrence: US)
  Receive Date: 20210824
  Receipt Date: 20210824
  Transmission Date: 20211014
  Serious: Yes (Death, Hospitalization)
  Sender: FDA-Public Use
  Company Number: US-ROCHE-2893537

PATIENT
  Age: 65 Year
  Sex: Male
  Weight: 119.86 kg

DRUGS (1)
  1. ALECENSA [Suspect]
     Active Substance: ALECTINIB HYDROCHLORIDE
     Indication: PANCREATIC CARCINOMA
     Route: 048
     Dates: start: 20200417

REACTIONS (10)
  - Vomiting [Recovered/Resolved]
  - Respiratory symptom [Fatal]
  - Balance disorder [Recovered/Resolved]
  - Speech disorder [Recovered/Resolved]
  - Off label use [Unknown]
  - Fall [Unknown]
  - Asthenia [Recovered/Resolved]
  - Weight decreased [Recovered/Resolved]
  - Swelling [Recovered/Resolved]
  - Skin discolouration [Recovered/Resolved]

NARRATIVE: CASE EVENT DATE: 20200417
